FAERS Safety Report 20437723 (Version 1)
Quarter: 2022Q1

REPORT INFORMATION
  Report Type: Spontaneous
  Country: US (occurrence: None)
  Receive Date: 20220204
  Receipt Date: 20220204
  Transmission Date: 20220423
  Serious: No
  Sender: FDA-Public Use
  Company Number: None

PATIENT
  Age: 49 Year
  Sex: Female
  Weight: 89.81 kg

DRUGS (1)
  1. COSENTYX [Suspect]
     Active Substance: SECUKINUMAB
     Indication: Psoriatic arthropathy
     Dosage: FREQUENCY : AS DIRECTED;?INJECT 150MG (1 PEN) SUBCUTANEOUSLY AT DAY 28 (DOSE 5),?THEN EVERY 4 WEEKS
     Route: 058
     Dates: start: 202106

REACTIONS (1)
  - COVID-19 [None]
